FAERS Safety Report 5063062-7 (Version None)
Quarter: 2006Q3

REPORT INFORMATION
  Report Type: 
  Country: None (occurrence: None)
  Receive Date: 20060725
  Receipt Date: 20060725
  Transmission Date: 20061208
  Serious: Yes (Hospitalization)
  Sender: FDA-Public Use
  Company Number: None

PATIENT
  Age: 57 Year
  Sex: Male

DRUGS (1)
  1. PREDNISONE [Suspect]

REACTIONS (5)
  - ASTHENIA [None]
  - FALL [None]
  - FATIGUE [None]
  - HIP FRACTURE [None]
  - WEIGHT DECREASED [None]
